FAERS Safety Report 8521937-8 (Version None)
Quarter: 2012Q3

REPORT INFORMATION
  Report Type: 
  Country: None (occurrence: None)
  Receive Date: 20120719
  Receipt Date: 20120606
  Transmission Date: 20120928
  Serious: No
  Sender: FDA-Public Use
  Company Number: US-BRISTOL-MYERS SQUIBB COMPANY-16666679

PATIENT

DRUGS (1)
  1. IPILIMUMAB [Suspect]

REACTIONS (3)
  - ADRENAL INSUFFICIENCY [None]
  - ENDOCRINE DISORDER [None]
  - HYPOPHYSITIS [None]
